FAERS Safety Report 24174844 (Version 1)
Quarter: 2024Q3

REPORT INFORMATION
  Report Type: Spontaneous
  Country: US (occurrence: US)
  Receive Date: 20240805
  Receipt Date: 20240805
  Transmission Date: 20241016
  Serious: No
  Sender: MYLAN
  Company Number: US-MYLANLABS-2024M1070189

PATIENT
  Sex: Female

DRUGS (1)
  1. ESTRADIOL TRANSDERMAL SYSTEM [Suspect]
     Active Substance: ESTRADIOL
     Indication: Product used for unknown indication
     Dosage: 0.025 MILLIGRAM, QD (PER DAY, TWICE WEEKLY)
     Route: 062

REACTIONS (3)
  - Application site erythema [Unknown]
  - Product adhesion issue [Unknown]
  - Product residue present [Unknown]

NARRATIVE: CASE EVENT DATE: 20240701
